FAERS Safety Report 8281234-5 (Version None)
Quarter: 2012Q2

REPORT INFORMATION
  Report Type: 
  Country: None (occurrence: None)
  Receive Date: 20120413
  Receipt Date: 20120405
  Transmission Date: 20120825
  Serious: No
  Sender: FDA-Public Use
  Company Number: US-BIOGENIDEC-2012BI012189

PATIENT
  Age: 34 Year
  Sex: Female

DRUGS (1)
  1. TYSABRI [Suspect]
     Indication: MULTIPLE SCLEROSIS
     Route: 042
     Dates: start: 20120112

REACTIONS (6)
  - PARAESTHESIA [None]
  - HYPERSENSITIVITY [None]
  - DEPRESSION [None]
  - HEADACHE [None]
  - FATIGUE [None]
  - ASTHENIA [None]
